FAERS Safety Report 14360978 (Version 1)
Quarter: 2018Q1

REPORT INFORMATION
  Report Type: Report from Study
  Country: BR (occurrence: BR)
  Receive Date: 20180107
  Receipt Date: 20180107
  Transmission Date: 20180509
  Serious: Yes (Other)
  Sender: FDA-Public Use
  Company Number: BR-SHIRE-BR201706371

PATIENT
  Age: 10 Year
  Sex: Male
  Weight: 32 kg

DRUGS (2)
  1. ALENDRONATE SODIUM HYDRATE [Concomitant]
     Active Substance: ALENDRONATE SODIUM
     Indication: SEIZURE
  2. ELAPRASE [Suspect]
     Active Substance: IDURSULFASE
     Indication: MUCOPOLYSACCHARIDOSIS II
     Dosage: 18 MG, (3 VIALS), EVERY 8 DAYS
     Route: 041
     Dates: start: 201204

REACTIONS (11)
  - Hydrocephalus [Unknown]
  - Seizure [Recovering/Resolving]
  - Gait inability [Unknown]
  - Astigmatism [Unknown]
  - Influenza [Unknown]
  - Eczema [Unknown]
  - Rhinorrhoea [Unknown]
  - Snoring [Unknown]
  - Pruritus [Recovering/Resolving]
  - Dyspnoea [Unknown]
  - Drug dose omission [Unknown]

NARRATIVE: CASE EVENT DATE: 201604
